FAERS Safety Report 11820772 (Version 1)
Quarter: 2015Q4

REPORT INFORMATION
  Report Type: Spontaneous
  Country: US (occurrence: US)
  Receive Date: 20151210
  Receipt Date: 20151210
  Transmission Date: 20160305
  Serious: No
  Sender: FDA-Public Use
  Company Number: US-JNJFOC-20150610336

PATIENT
  Sex: Male

DRUGS (8)
  1. PREDNISONE. [Concomitant]
     Active Substance: PREDNISONE
  2. IMBRUVICA [Suspect]
     Active Substance: IBRUTINIB
     Indication: CHRONIC LYMPHOCYTIC LEUKAEMIA
     Route: 048
     Dates: start: 20150410
  3. ISONIAZID. [Concomitant]
     Active Substance: ISONIAZID
  4. MULTIVITAMINS [Concomitant]
     Active Substance: VITAMINS
  5. CALCIUM CARBONATE-VITAMIN D [Concomitant]
     Active Substance: CALCIUM CARBONATE\VITAMIN D
  6. ASCORBIC ACID. [Concomitant]
     Active Substance: ASCORBIC ACID
  7. TYLENOL 8 HR [Concomitant]
     Active Substance: ACETAMINOPHEN
  8. FOLIC ACID. [Concomitant]
     Active Substance: FOLIC ACID

REACTIONS (4)
  - Dizziness [Not Recovered/Not Resolved]
  - Asthenia [Unknown]
  - Peripheral swelling [Unknown]
  - Prescribed underdose [Unknown]

NARRATIVE: CASE EVENT DATE: 2015
